FAERS Safety Report 15402135 (Version 1)
Quarter: 2018Q3

REPORT INFORMATION
  Report Type: Spontaneous
  Country: DE (occurrence: DE)
  Receive Date: 20180919
  Receipt Date: 20180919
  Transmission Date: 20181010
  Serious: Yes (Hospitalization)
  Sender: FDA-Public Use
  Company Number: DE-PFIZER INC-2018373677

PATIENT
  Age: 68 Year
  Sex: Male

DRUGS (14)
  1. EDARBI [Concomitant]
     Active Substance: AZILSARTAN KAMEDOXOMIL
     Dosage: UNK
  2. JARDIANCE [Concomitant]
     Active Substance: EMPAGLIFLOZIN
     Dosage: UNK
  3. GABAPENTIN. [Suspect]
     Active Substance: GABAPENTIN
     Dosage: UNK
     Route: 048
  4. CARVEDILOL ATID [Concomitant]
  5. SPIRONOLACTON AL [Concomitant]
     Dosage: UNK
  6. JODID HEXAL [Concomitant]
     Dosage: UNK
  7. APIDRA [Concomitant]
     Active Substance: INSULIN GLULISINE
     Dosage: 1 DF, 1X/DAY IN THE MORNING
  8. CARVEDILOL ATID [Concomitant]
     Dosage: UNK
  9. LANTUS [Concomitant]
     Active Substance: INSULIN GLARGINE
     Dosage: 1 DF, 1X/DAY IN THE EVENING
  10. LERCANIDIPIN HEUMANN [Concomitant]
     Dosage: UNK
  11. OMEPRAZOL?RATIOPHARM NT [Concomitant]
     Dosage: UNK
  12. NEPRESOL [Concomitant]
     Dosage: UNK
  13. ASS STADA [Concomitant]
     Active Substance: ASPIRIN
     Dosage: UNK
  14. ENALAPRIL VITABALANS [Concomitant]
     Dosage: UNK

REACTIONS (2)
  - Pain of skin [Unknown]
  - Subdural haematoma [Unknown]

NARRATIVE: CASE EVENT DATE: 201806
